FAERS Safety Report 9370188 (Version 1)
Quarter: 2013Q2

REPORT INFORMATION
  Report Type: Spontaneous
  Country: CN (occurrence: CN)
  Receive Date: 20130626
  Receipt Date: 20130626
  Transmission Date: 20140414
  Serious: Yes (Other)
  Sender: FDA-Public Use
  Company Number: CN-ASTRAZENECA-2013SE45411

PATIENT
  Age: 30681 Day
  Sex: Female

DRUGS (11)
  1. FELODIPINE [Suspect]
     Indication: HYPERTENSION
     Route: 048
     Dates: start: 20121027, end: 20121114
  2. MANNITOL [Concomitant]
     Indication: DIURETIC THERAPY
     Route: 041
     Dates: start: 20121027, end: 20121106
  3. GLYCEROL FRUCTOSE AND SODIUM CHLORIDE [Concomitant]
     Indication: DIURETIC THERAPY
     Route: 041
     Dates: start: 20121027, end: 20121108
  4. MECLOFENOXATE HYDROCHLORIDE [Concomitant]
     Indication: NERVOUS SYSTEM DISORDER
     Route: 041
     Dates: start: 20121027, end: 20121108
  5. GINKGO LEAF EXTRACT AND DIPYRIDAMOLE [Concomitant]
     Indication: CARDIOVASCULAR DISORDER
     Route: 041
     Dates: start: 20121027, end: 20121108
  6. ASPIRIN [Concomitant]
     Indication: ANTICOAGULANT THERAPY
     Route: 048
     Dates: start: 20121027, end: 20121114
  7. ATORVASTATIN CALCIUM [Concomitant]
     Indication: LIPIDS ABNORMAL
     Route: 048
     Dates: start: 20121027, end: 20121112
  8. BENAZEPRIL HYDROCHLORIDE [Concomitant]
     Indication: HYPERTENSION
     Route: 048
     Dates: start: 20121027, end: 20121114
  9. FUROSEMIDE [Concomitant]
     Indication: POLYURIA
     Route: 048
     Dates: start: 20121028, end: 20121114
  10. CLINDAMYCIN PHOSPHATE [Concomitant]
     Indication: INFECTION
     Route: 041
     Dates: start: 20121029, end: 20121114
  11. EDARAVONE [Concomitant]
     Indication: NERVOUS SYSTEM DISORDER
     Route: 041
     Dates: start: 20121106, end: 20121114

REACTIONS (1)
  - Wernicke^s encephalopathy [Not Recovered/Not Resolved]
